FAERS Safety Report 9570890 (Version 2)
Quarter: 2014Q2

REPORT INFORMATION
  Report Type: Spontaneous
  Country: US (occurrence: US)
  Receive Date: 20131001
  Receipt Date: 20140417
  Transmission Date: 20141212
  Serious: Yes (Hospitalization)
  Sender: FDA-Public Use
  Company Number: US-BAYER-2013-118176

PATIENT
  Age: 20 Year
  Sex: Female
  Weight: 62.13 kg

DRUGS (8)
  1. YAZ [Suspect]
     Indication: MENSTRUAL CYCLE MANAGEMENT
     Dosage: UNK
     Dates: start: 200709
  2. YAZ [Suspect]
     Indication: CONTRACEPTION
     Dosage: UNK
     Dates: start: 20070716, end: 20081029
  3. YAZ [Suspect]
     Indication: PREMENSTRUAL SYNDROME
  4. YAZ [Suspect]
     Indication: ACNE
  5. LISINOPRIL [Concomitant]
  6. VITAMIN B [Concomitant]
  7. IBUPROFEN [Concomitant]
     Indication: HEADACHE
  8. CYMBALTA [Concomitant]

REACTIONS (8)
  - Cerebrovascular accident [None]
  - Hypertension [None]
  - Injury [None]
  - Pain [None]
  - Emotional distress [None]
  - Headache [None]
  - Incoherent [None]
  - Anxiety [None]
